FAERS Safety Report 12171539 (Version 1)
Quarter: 2016Q1

REPORT INFORMATION
  Report Type: Report from Study
  Country: AU (occurrence: AU)
  Receive Date: 20160311
  Receipt Date: 20160311
  Transmission Date: 20160526
  Serious: Yes (Other)
  Sender: FDA-Public Use
  Company Number: AU-REGENERON PHARMACEUTICALS, INC.-2016-13203

PATIENT

DRUGS (1)
  1. EYLEA [Suspect]
     Active Substance: AFLIBERCEPT
     Indication: NEOVASCULAR AGE-RELATED MACULAR DEGENERATION
     Dosage: 2 MG MILLIGRAM(S),  QD 12 WEEKLY
     Route: 031

REACTIONS (4)
  - Ocular discomfort [Unknown]
  - Product use issue [Unknown]
  - Eye infection [Unknown]
  - Headache [Unknown]

NARRATIVE: CASE EVENT DATE: 201601
